FAERS Safety Report 6723417-9 (Version None)
Quarter: 2010Q2

REPORT INFORMATION
  Report Type: 
  Country: None (occurrence: None)
  Receive Date: 20100513
  Receipt Date: 20100503
  Transmission Date: 20101027
  Serious: Yes (Other)
  Sender: FDA-Public Use
  Company Number: PHHY2010DE29447

PATIENT
  Sex: Male
  Weight: 83 kg

DRUGS (1)
  1. LDT600 LDT+ [Suspect]
     Indication: HEPATITIS B
     Dosage: 600 MG, DAILY
     Route: 048
     Dates: start: 20090420

REACTIONS (2)
  - HEPATITIS B ANTIGEN POSITIVE [None]
  - HEPATITIS B DNA INCREASED [None]
